FAERS Safety Report 20982417 (Version 1)
Quarter: 2022Q2

REPORT INFORMATION
  Report Type: Spontaneous
  Country: US (occurrence: US)
  Receive Date: 20220620
  Receipt Date: 20220620
  Transmission Date: 20220721
  Serious: No
  Sender: FDA-Public Use
  Company Number: US-JOURNEY MEDICAL CORPORATION-2022JNY00654

PATIENT
  Age: 85 Year
  Sex: Female
  Weight: 63.492 kg

DRUGS (2)
  1. ZILXI [Suspect]
     Active Substance: MINOCYCLINE HYDROCHLORIDE
     Indication: Rosacea
     Dosage: UNK UNK, AS NEEDED
  2. UNSPECIFIED INGREDIENT [Concomitant]
     Active Substance: UNSPECIFIED INGREDIENT

REACTIONS (2)
  - Therapeutic product effect delayed [Unknown]
  - Product use issue [Unknown]

NARRATIVE: CASE EVENT DATE: 20211228
